FAERS Safety Report 16293620 (Version 1)
Quarter: 2019Q2

REPORT INFORMATION
  Report Type: Spontaneous
  Country: US (occurrence: US)
  Receive Date: 20190509
  Receipt Date: 20190509
  Transmission Date: 20190711
  Serious: No
  Sender: FDA-Public Use
  Company Number: US-ALKERMES INC.-ALK-2018-004422

PATIENT
  Age: 38 Year
  Sex: Male

DRUGS (2)
  1. VIVITROL [Suspect]
     Active Substance: NALTREXONE
     Indication: DRUG DEPENDENCE
     Dosage: 380 MG, QMO
     Route: 030
     Dates: start: 20180622
  2. SEROQUEL [Concomitant]
     Active Substance: QUETIAPINE FUMARATE
     Indication: PRODUCT USED FOR UNKNOWN INDICATION
     Route: 065

REACTIONS (8)
  - Abnormal behaviour [Unknown]
  - Malaise [Unknown]
  - Tobacco user [Unknown]
  - Product dose omission [Not Recovered/Not Resolved]
  - Dehydration [Unknown]
  - Occupational exposure to extreme temperature [Unknown]
  - Heat exhaustion [Unknown]
  - Infection [Unknown]

NARRATIVE: CASE EVENT DATE: 2018
